FAERS Safety Report 11701993 (Version 1)
Quarter: 2015Q4

REPORT INFORMATION
  Report Type: Spontaneous
  Country: CN (occurrence: CN)
  Receive Date: 20151105
  Receipt Date: 20151105
  Transmission Date: 20160304
  Serious: Yes (Death, Hospitalization, Other)
  Sender: FDA-Public Use
  Company Number: CN-ELI_LILLY_AND_COMPANY-CN201510009576

PATIENT
  Age: 77 Year
  Sex: Female

DRUGS (1)
  1. HUMULIN 70/30 [Suspect]
     Active Substance: INSULIN HUMAN
     Indication: DIABETES MELLITUS
     Dosage: 15 U, BID
     Route: 058
     Dates: start: 20150101, end: 20150227

REACTIONS (8)
  - Cardiac arrest [Fatal]
  - Infection [Not Recovered/Not Resolved]
  - Blood glucose fluctuation [Not Recovered/Not Resolved]
  - Septic encephalopathy [Not Recovered/Not Resolved]
  - Mouth haemorrhage [Unknown]
  - Brain injury [Not Recovered/Not Resolved]
  - Toxic encephalopathy [Not Recovered/Not Resolved]
  - Hypoglycaemic coma [Recovered/Resolved with Sequelae]

NARRATIVE: CASE EVENT DATE: 20150226
